FAERS Safety Report 6164156-5 (Version None)
Quarter: 2009Q2

REPORT INFORMATION
  Report Type: 
  Country: None (occurrence: None)
  Receive Date: 20090422
  Receipt Date: 20061129
  Transmission Date: 20091009
  Serious: No
  Sender: FDA-Public Use
  Company Number: CA-SOLVAY-00306003918

PATIENT
  Age: 526 Month
  Sex: Female

DRUGS (1)
  1. ANDROGEL [Suspect]
     Indication: ACCIDENTAL EXPOSURE
     Dosage: DAILY DOSE: 5 GRAM(S)
     Route: 061
     Dates: start: 20050801

REACTIONS (2)
  - ACNE [None]
  - HAIR GROWTH ABNORMAL [None]
